FAERS Safety Report 24818843 (Version 1)
Quarter: 2025Q1

REPORT INFORMATION
  Report Type: Spontaneous
  Country: US (occurrence: US)
  Receive Date: 20250108
  Receipt Date: 20250108
  Transmission Date: 20250408
  Serious: Yes (Other)
  Sender: SANOFI AVENTIS
  Company Number: US-SANDOZ-SDZ2024US075211

PATIENT
  Age: 6 Year
  Sex: Male

DRUGS (9)
  1. MONTELUKAST [Suspect]
     Active Substance: MONTELUKAST
     Indication: Deafness
     Route: 065
  2. PREDNISOLONE [Suspect]
     Active Substance: PREDNISOLONE
     Indication: Deafness
     Route: 065
  3. DUPIXENT [Suspect]
     Active Substance: DUPILUMAB
     Indication: Deafness
     Dosage: UNK, QOW (EVERY 2 WEEKS, ALREADY GOT 3 INJECTIONS)
     Route: 065
  4. CINNARIZINE [Suspect]
     Active Substance: CINNARIZINE
     Indication: Deafness
     Route: 065
  5. PREDNISONE [Suspect]
     Active Substance: PREDNISONE
     Indication: Deafness
     Route: 065
  6. BETAHISTINE [Suspect]
     Active Substance: BETAHISTINE
     Indication: Deafness
     Route: 065
  7. BUDESONIDE [Suspect]
     Active Substance: BUDESONIDE
     Indication: Deafness
     Route: 065
  8. MAGNESIUM ASPARTATE\POTASSIUM ASPARTATE [Suspect]
     Active Substance: MAGNESIUM ASPARTATE\POTASSIUM ASPARTATE
     Indication: Deafness
     Route: 065
  9. ACETAZOLAMIDE [Suspect]
     Active Substance: ACETAZOLAMIDE
     Indication: Deafness
     Route: 065

REACTIONS (5)
  - Mast cell activation syndrome [Unknown]
  - Deafness [Unknown]
  - Blood immunoglobulin E increased [Unknown]
  - COVID-19 [Unknown]
  - Drug ineffective [Unknown]

NARRATIVE: CASE EVENT DATE: 20230101
